FAERS Safety Report 5306105-5 (Version None)
Quarter: 2007Q2

REPORT INFORMATION
  Report Type: 
  Country: None (occurrence: None)
  Receive Date: 20070424
  Receipt Date: 20061116
  Transmission Date: 20071010
  Serious: No
  Sender: FDA-Public Use
  Company Number: US-BRISTOL-MYERS SQUIBB COMPANY-13562236

PATIENT
  Age: 53 Year
  Sex: Female

DRUGS (10)
  1. CARBOPLATIN [Suspect]
     Indication: OVARIAN CANCER
     Route: 042
     Dates: start: 20050225, end: 20051024
  2. TAXOL [Concomitant]
  3. KYTRIL [Concomitant]
  4. DECADRON [Concomitant]
  5. TAGAMET [Concomitant]
  6. BENADRYL [Concomitant]
  7. CALCIUM CARBONATE [Concomitant]
  8. MULTI-VITAMIN [Concomitant]
  9. NEULASTA [Concomitant]
  10. SENOKOT [Concomitant]

REACTIONS (1)
  - NONSPECIFIC REACTION [None]
